FAERS Safety Report 6116452-5 (Version None)
Quarter: 2009Q1

REPORT INFORMATION
  Report Type: 
  Country: None (occurrence: None)
  Receive Date: 20090314
  Receipt Date: 20081218
  Transmission Date: 20090719
  Serious: No
  Sender: FDA-Public Use
  Company Number: US-ABBOTT-08P-163-0494263-00

PATIENT
  Sex: Female
  Weight: 36.32 kg

DRUGS (3)
  1. HUMIRA [Suspect]
     Indication: RHEUMATOID ARTHRITIS
     Route: 058
     Dates: start: 20070101, end: 20080601
  2. HUMIRA [Suspect]
     Route: 058
     Dates: start: 20081001
  3. LEVOTHYROXINE SODIUM [Concomitant]
     Indication: HYPOTHYROIDISM
     Route: 048

REACTIONS (4)
  - NASOPHARYNGITIS [None]
  - NIGHT SWEATS [None]
  - OROPHARYNGEAL PAIN [None]
  - SPONDYLITIS [None]
